FAERS Safety Report 19250559 (Version 2)
Quarter: 2021Q4

REPORT INFORMATION
  Report Type: Spontaneous
  Country: IT (occurrence: IT)
  Receive Date: 20210513
  Receipt Date: 20211231
  Transmission Date: 20220303
  Serious: Yes (Congenital Anomaly, Other)
  Sender: FDA-Public Use
  Company Number: IT-AMGEN-ITASP2021071291

PATIENT

DRUGS (2)
  1. ADALIMUMAB [Suspect]
     Active Substance: ADALIMUMAB
     Indication: Exposure during pregnancy
     Dosage: 40 MILLIGRAM, CYCLICAL
     Route: 064
     Dates: start: 20200102, end: 20201127
  2. HYRIMOZ [Suspect]
     Active Substance: ADALIMUMAB-ADAZ
     Indication: Exposure during pregnancy
     Dosage: 40 MILLIGRAM, CYCLICAL
     Route: 064
     Dates: start: 20200410

REACTIONS (4)
  - Hydrocephalus [Not Recovered/Not Resolved]
  - Arnold-Chiari malformation [Not Recovered/Not Resolved]
  - Foetal malformation [Not Recovered/Not Resolved]
  - Scoliosis [Not Recovered/Not Resolved]

NARRATIVE: CASE EVENT DATE: 20201216
